FAERS Safety Report 4986663-0 (Version None)
Quarter: 2006Q2

REPORT INFORMATION
  Report Type: 
  Country: None (occurrence: None)
  Receive Date: 20060428
  Receipt Date: 20050915
  Transmission Date: 20061013
  Serious: Yes (Hospitalization)
  Sender: FDA-Public Use
  Company Number: US-MERCK-0509USA02480

PATIENT
  Age: 51 Year
  Sex: Female
  Weight: 114 kg

DRUGS (6)
  1. VIOXX [Suspect]
     Indication: ARTHRALGIA
     Route: 048
     Dates: start: 20010101, end: 20040801
  2. VIOXX [Suspect]
     Indication: OSTEOARTHRITIS
     Route: 048
     Dates: start: 20010101, end: 20040801
  3. CELEBREX [Suspect]
     Indication: ARTHRITIS
     Route: 065
     Dates: start: 20020101, end: 20030101
  4. EFFEXOR [Concomitant]
     Indication: DEPRESSION
     Route: 065
     Dates: start: 20030101
  5. ZOLOFT [Concomitant]
     Indication: DEPRESSION
     Route: 065
     Dates: start: 19930101, end: 20030101
  6. PREVACID [Concomitant]
     Route: 065

REACTIONS (16)
  - ASTHMA [None]
  - CHEST PAIN [None]
  - DEPRESSION [None]
  - DYSARTHRIA [None]
  - GASTRIC ULCER [None]
  - GASTRIC ULCER HAEMORRHAGE [None]
  - GASTROOESOPHAGEAL REFLUX DISEASE [None]
  - HAEMATEMESIS [None]
  - HYPERTENSION [None]
  - OESOPHAGITIS [None]
  - PARALYSIS [None]
  - ROTATOR CUFF SYNDROME [None]
  - TRANSIENT ISCHAEMIC ATTACK [None]
  - VAGINAL HAEMORRHAGE [None]
  - VENTRICULAR EXTRASYSTOLES [None]
  - VOMITING [None]
